FAERS Safety Report 13489091 (Version 1)
Quarter: 2017Q2

REPORT INFORMATION
  Report Type: Spontaneous
  Country: US (occurrence: US)
  Receive Date: 20170426
  Receipt Date: 20170426
  Transmission Date: 20170830
  Serious: No
  Sender: FDA-Public Use
  Company Number: US-MAYNE PHARMA-2016MYN001352

PATIENT
  Sex: Male

DRUGS (2)
  1. CARBIDOPA/LEVODOPA [Suspect]
     Active Substance: CARBIDOPA\LEVODOPA
     Indication: PARKINSON^S DISEASE
     Dosage: 19.2 DOSAGE FORMS DAILY; 1 DOSAGE FORM = 25MG CARBIDOPA/100MG LEVODOPA
     Route: 048
  2. CARBIDOPA/LEVODOPA [Suspect]
     Active Substance: CARBIDOPA\LEVODOPA
     Dosage: 1 DOSAGE FORMS DAILY; 1 DOSAGE FORM = 50MG CARBIDOPA/200MG LEVODOPA AT BEDTIME
     Route: 048

REACTIONS (4)
  - Joint stiffness [Unknown]
  - Drug effect decreased [Unknown]
  - Tremor [Unknown]
  - Overdose [Unknown]
